APPROVED DRUG PRODUCT: ERYTHROMYCIN AND BENZOYL PEROXIDE
Active Ingredient: BENZOYL PEROXIDE; ERYTHROMYCIN
Strength: 5%;3%
Dosage Form/Route: GEL;TOPICAL
Application: A065385 | Product #001 | TE Code: AB
Applicant: RISING PHARMA HOLDINGS INC
Approved: Sep 18, 2015 | RLD: No | RS: No | Type: RX